FAERS Safety Report 4417602-9 (Version None)
Quarter: 2004Q3

REPORT INFORMATION
  Report Type: 
  Country: None (occurrence: None)
  Receive Date: 20040803
  Receipt Date: 20040720
  Transmission Date: 20050211
  Serious: Yes (Hospitalization)
  Sender: FDA-Public Use
  Company Number: 2004-UK-00688UK

PATIENT
  Age: 64 Year
  Sex: Female

DRUGS (7)
  1. SPIRIVA [Suspect]
     Indication: CHRONIC OBSTRUCTIVE AIRWAYS DISEASE
     Dosage: 18 MCG, OD) IH
     Route: 055
     Dates: start: 20040615, end: 20040706
  2. COMBIVENT (00015/0191) (COMBIVENT) (LOH) (SALBUTAMOL, IPRATROPIUM-BR) [Suspect]
     Dosage: IH
     Route: 055
  3. SYMBICORT (SYMBICORT TRUBUHALER  DRACO) [Concomitant]
  4. ATORVASTATIN (ATORVASTATIN) (TA) [Concomitant]
  5. FUROSEMIDE [Concomitant]
  6. RAMIPRIL [Concomitant]
  7. COMBIVENT UDV(0015/0197) (COMBIVENT) (LOH) (IPRATROPIUM-BR) [Concomitant]

REACTIONS (2)
  - CHRONIC OBSTRUCTIVE AIRWAYS DISEASE EXACERBATED [None]
  - DRUG INTERACTION [None]
